FAERS Safety Report 14819091 (Version 2)
Quarter: 2018Q2

REPORT INFORMATION
  Report Type: Report from Study
  Country: US (occurrence: US)
  Receive Date: 20180427
  Receipt Date: 20180525
  Transmission Date: 20180711
  Serious: Yes (Hospitalization, Other)
  Sender: FDA-Public Use
  Company Number: US-GILEAD-2018-0334775

PATIENT
  Age: 70 Year
  Sex: Female
  Weight: 84.44 kg

DRUGS (14)
  1. AMBRISENTAN [Suspect]
     Active Substance: AMBRISENTAN
     Dosage: 10 MG, QD
     Route: 065
  2. ALLOPURINOL. [Concomitant]
     Active Substance: ALLOPURINOL
     Dosage: 300 MG, UNK
  3. CIALIS [Concomitant]
     Active Substance: TADALAFIL
     Dosage: 20 MG, BID
  4. DOXYCYCLINE MONOHYDRATE [Concomitant]
     Active Substance: DOXYCYCLINE
     Dosage: 100 MG, UNK
  5. HYDROCODONE BITARTRATE AND ACETAMINOPHEN [Concomitant]
     Active Substance: ACETAMINOPHEN\HYDROCODONE BITARTRATE
  6. VITAMIN D2 [Concomitant]
     Active Substance: ERGOCALCIFEROL
  7. LOSARTAN. [Concomitant]
     Active Substance: LOSARTAN
     Dosage: 100 MG, UNK
  8. SPIRONOLACTONE. [Concomitant]
     Active Substance: SPIRONOLACTONE
     Dosage: 25 MG, UNK
  9. LYRICA [Concomitant]
     Active Substance: PREGABALIN
     Dosage: 50 MG, UNK
  10. PANTOPRAZOLE [Concomitant]
     Active Substance: PANTOPRAZOLE
     Dosage: 40 MG, UNK
  11. SYMBICORT [Concomitant]
     Active Substance: BUDESONIDE\FORMOTEROL FUMARATE DIHYDRATE
  12. AMBRISENTAN [Suspect]
     Active Substance: AMBRISENTAN
     Indication: PULMONARY ARTERIAL HYPERTENSION
     Dosage: 5 MG, QD
     Route: 065
     Dates: start: 20180331
  13. LEVEMIR [Concomitant]
     Active Substance: INSULIN DETEMIR
  14. FOLIC ACID. [Concomitant]
     Active Substance: FOLIC ACID
     Dosage: 1 MG, UNK

REACTIONS (3)
  - Fluid retention [Recovered/Resolved]
  - Cardiac failure congestive [Unknown]
  - Pulmonary arterial hypertension [Not Recovered/Not Resolved]

NARRATIVE: CASE EVENT DATE: 20180416
